FAERS Safety Report 5143966-7 (Version None)
Quarter: 2006Q4

REPORT INFORMATION
  Report Type: 
  Country: None (occurrence: None)
  Receive Date: 20061106
  Receipt Date: 20060714
  Transmission Date: 20070319
  Serious: Yes (Hospitalization)
  Sender: FDA-Public Use
  Company Number: DE-AVENTIS-200612087DE

PATIENT
  Age: 73 Year
  Sex: Female

DRUGS (5)
  1. ARAVA [Suspect]
     Indication: RHEUMATOID ARTHRITIS
     Route: 048
  2. PREDNISOLON [Suspect]
     Indication: RHEUMATOID ARTHRITIS
     Route: 048
  3. PREDNISOLON [Suspect]
     Dosage: DOSE: NOT REPORTED
     Route: 048
  4. METHOTREXAT                        /00113801/ [Suspect]
     Indication: RHEUMATOID ARTHRITIS
     Dosage: DOSE: 1X1
     Route: 048
  5. DICLOFENAC [Suspect]
     Indication: RHEUMATOID ARTHRITIS
     Route: 048

REACTIONS (2)
  - DEEP VEIN THROMBOSIS [None]
  - GASTRIC ULCER [None]
